FAERS Safety Report 13725711 (Version 1)
Quarter: 2017Q3

REPORT INFORMATION
  Report Type: Spontaneous
  Country: AR (occurrence: AR)
  Receive Date: 20170707
  Receipt Date: 20170707
  Transmission Date: 20171127
  Serious: Yes (Death, Other)
  Sender: FDA-Public Use
  Company Number: AR-ROCHE-1959339

PATIENT
  Age: 66 Year
  Sex: Female

DRUGS (2)
  1. RITUXIMAB. [Suspect]
     Active Substance: RITUXIMAB
     Indication: CRYOGLOBULINAEMIA
     Route: 042
  2. RITUXIMAB. [Suspect]
     Active Substance: RITUXIMAB
     Dosage: IN 2 INFUSIONS OF 500 MG EACH
     Route: 042
     Dates: start: 201701

REACTIONS (6)
  - Viraemia [Recovered/Resolved]
  - Light chain disease [Unknown]
  - Ventricular fibrillation [Fatal]
  - Myocarditis [Unknown]
  - Off label use [Fatal]
  - Encephalitis protozoal [Unknown]

NARRATIVE: CASE EVENT DATE: 20170523
